FAERS Safety Report 24289381 (Version 1)
Quarter: 2024Q3

REPORT INFORMATION
  Report Type: Spontaneous
  Country: US (occurrence: US)
  Receive Date: 20240906
  Receipt Date: 20240906
  Transmission Date: 20241016
  Serious: Yes (Other)
  Sender: TEVA
  Company Number: US-TEVA-VS-3237979

PATIENT
  Age: 66 Year

DRUGS (1)
  1. COPAXONE [Suspect]
     Active Substance: GLATIRAMER ACETATE
     Indication: Multiple sclerosis
     Dosage: DOSAGE: 20 MG/ML
     Route: 065

REACTIONS (3)
  - Multiple sclerosis relapse [Unknown]
  - Fat tissue decreased [Unknown]
  - Device difficult to use [Unknown]
